FAERS Safety Report 5628680-3 (Version None)
Quarter: 2008Q1

REPORT INFORMATION
  Report Type: 
  Country: None (occurrence: None)
  Receive Date: 20080215
  Receipt Date: 20080205
  Transmission Date: 20080703
  Serious: Yes (Congenital Anomaly, Other)
  Sender: FDA-Public Use
  Company Number: US-PFIZER INC-2008011947

PATIENT

DRUGS (1)
  1. LYRICA [Suspect]

REACTIONS (6)
  - CLEFT LIP [None]
  - CLEFT PALATE [None]
  - CONGENITAL FOOT MALFORMATION [None]
  - HYDROPS FOETALIS [None]
  - POLYHYDRAMNIOS [None]
  - TRANSMISSION OF DRUG VIA SEMEN [None]
